FAERS Safety Report 10128449 (Version 1)
Quarter: 2014Q2

REPORT INFORMATION
  Report Type: Spontaneous
  Country: US (occurrence: US)
  Receive Date: 20140428
  Receipt Date: 20140428
  Transmission Date: 20141212
  Serious: No
  Sender: FDA-Public Use
  Company Number: US-009507513-1404USA013925

PATIENT
  Sex: Male

DRUGS (6)
  1. ZOCOR [Suspect]
     Dosage: UNK
  2. ASPIRIN [Concomitant]
  3. PLAVIX [Concomitant]
  4. METOPROLOL [Concomitant]
  5. ALLOPURINOL [Concomitant]
  6. LISINOPRIL [Concomitant]

REACTIONS (1)
  - Arthralgia [Recovered/Resolved]
